FAERS Safety Report 12031656 (Version 1)
Quarter: 2016Q1

REPORT INFORMATION
  Report Type: Report from Study
  Country: US (occurrence: US)
  Receive Date: 20160207
  Receipt Date: 20160207
  Transmission Date: 20160526
  Serious: No
  Sender: FDA-Public Use
  Company Number: US-ABBVIE-15K-163-1510886-00

PATIENT
  Sex: Female

DRUGS (2)
  1. CORTISONE [Suspect]
     Active Substance: CORTISONE\HYDROCORTISONE
     Indication: ARTHRALGIA
     Route: 065
  2. HUMIRA [Suspect]
     Active Substance: ADALIMUMAB
     Indication: CROHN^S DISEASE
     Route: 058
     Dates: start: 201402

REACTIONS (3)
  - Arthralgia [Recovering/Resolving]
  - Joint effusion [Unknown]
  - Drug effect decreased [Not Recovered/Not Resolved]
